FAERS Safety Report 10276836 (Version 3)
Quarter: 2014Q4

REPORT INFORMATION
  Report Type: Spontaneous
  Country: JP (occurrence: JP)
  Receive Date: 20140703
  Receipt Date: 20141106
  Transmission Date: 20150528
  Serious: Yes (Death)
  Sender: FDA-Public Use
  Company Number: JP-TEVA-492374ISR

PATIENT
  Sex: Female
  Weight: 50 kg

DRUGS (11)
  1. REPLAS1 [Concomitant]
     Indication: DEHYDRATION
     Route: 051
     Dates: start: 20140516, end: 20140531
  2. E-FEN BUCCAL [Suspect]
     Active Substance: FENTANYL CITRATE
     Indication: BREAKTHROUGH PAIN
     Dosage: DAILY DOSE: 50MICROGRAM - 200MICROGRAM
     Route: 002
     Dates: start: 20140520, end: 20140525
  3. FENTANYL. [Concomitant]
     Active Substance: FENTANYL
     Route: 062
     Dates: start: 20140523, end: 20140531
  4. OXIFAST [Concomitant]
     Route: 051
     Dates: start: 20140529, end: 20140530
  5. FENTANYL. [Concomitant]
     Active Substance: FENTANYL
     Indication: CANCER PAIN
     Route: 062
     Dates: start: 20140517, end: 20140522
  6. OXIFAST [Concomitant]
     Indication: CANCER PAIN
     Route: 051
     Dates: start: 20140526, end: 20140528
  7. NOVAMIN [Concomitant]
     Active Substance: PROCHLORPERAZINE MALEATE
     Indication: PROPHYLAXIS OF NAUSEA AND VOMITING
     Route: 030
     Dates: start: 20140526, end: 20140531
  8. LASIX [Concomitant]
     Active Substance: FUROSEMIDE
     Indication: POLYURIA
     Route: 051
     Dates: start: 20140526, end: 20140531
  9. FENTANYL. [Concomitant]
     Active Substance: FENTANYL
     Route: 062
     Dates: start: 20140520, end: 20140522
  10. HICORT [Concomitant]
     Indication: ASTHMA
     Route: 051
     Dates: start: 20140516, end: 20140531
  11. SCOPOLAMINE BUTYLBROMIDE [Concomitant]
     Active Substance: SCOPOLAMINE
     Indication: ABDOMINAL PAIN
     Route: 051
     Dates: start: 20140524, end: 20140524

REACTIONS (1)
  - Malignant neoplasm of renal pelvis [Fatal]
